FAERS Safety Report 5789132-3 (Version None)
Quarter: 2008Q2

REPORT INFORMATION
  Report Type: 
  Country: None (occurrence: None)
  Receive Date: 20080626
  Receipt Date: 20071116
  Transmission Date: 20081010
  Serious: No
  Sender: FDA-Public Use
  Company Number: US-ASTRAZENECA-2007UW26629

PATIENT
  Age: 72 Year
  Sex: Male
  Weight: 62.1 kg

DRUGS (8)
  1. PULMICORT-100 [Suspect]
     Indication: CHRONIC OBSTRUCTIVE PULMONARY DISEASE
     Dosage: 0.25 MG/DL
     Route: 055
  2. ATROVENT [Concomitant]
  3. ALBUTEROL [Concomitant]
  4. MUCINEX [Concomitant]
  5. ASCORBIC ACID [Concomitant]
  6. VITAMIN E [Concomitant]
  7. ZINC [Concomitant]
  8. MULTI-VITAMIN [Concomitant]

REACTIONS (1)
  - DYSPNOEA [None]
